FAERS Safety Report 8985850 (Version 1)
Quarter: 2012Q4

REPORT INFORMATION
  Report Type: 
  Country: US (occurrence: US)
  Receive Date: 20121226
  Receipt Date: 20121226
  Transmission Date: 20130627
  Serious: No
  Sender: FDA-Public Use
  Company Number: US-B.I. PHARMACEUTICALS,INC./RIDGEFIELD-2012-BI-03137BP

PATIENT
  Age: 54 None
  Sex: Female
  Weight: 53 kg

DRUGS (1)
  1. SPIRIVA [Suspect]
     Indication: CHRONIC OBSTRUCTIVE PULMONARY DISEASE
     Dosage: 18 mcg
     Route: 048
     Dates: start: 201205, end: 20121203

REACTIONS (6)
  - Glaucoma [Not Recovered/Not Resolved]
  - Rash macular [Recovered/Resolved]
  - Palpitations [Recovered/Resolved]
  - Vision blurred [Not Recovered/Not Resolved]
  - Pruritus [Recovered/Resolved]
  - Dry eye [Recovered/Resolved]
